FAERS Safety Report 18120408 (Version 10)
Quarter: 2021Q2

REPORT INFORMATION
  Report Type: Spontaneous
  Country: GB (occurrence: GB)
  Receive Date: 20200806
  Receipt Date: 20210607
  Transmission Date: 20210717
  Serious: Yes (Hospitalization, Other)
  Sender: FDA-Public Use
  Company Number: GB-MYLANLABS-2018M1088760

PATIENT
  Age: 24 Year
  Sex: Male

DRUGS (20)
  1. SODIUM VALPROATE [Concomitant]
     Active Substance: VALPROATE SODIUM
     Dosage: 25 MILLIMOLE, QD
     Route: 065
  2. QUETIAPINE. [Concomitant]
     Active Substance: QUETIAPINE
     Indication: PRODUCT USED FOR UNKNOWN INDICATION
     Dosage: 10 MILLILITER, AM
     Route: 065
  3. QUETIAPINE. [Concomitant]
     Active Substance: QUETIAPINE
     Dosage: 10 MILLILITER, QD
     Route: 065
  4. LITHIUM CITRATE. [Concomitant]
     Active Substance: LITHIUM CITRATE
     Indication: PRODUCT USED FOR UNKNOWN INDICATION
     Dosage: 1 DOSAGE FORM, QD (1 DF, QD (PM)
     Route: 005
  5. LITHIUM CITRATE. [Concomitant]
     Active Substance: LITHIUM CITRATE
     Dosage: 15 MILLILITER, QD (15 ML (600MG), DAILY)
     Route: 005
  6. CLOZARIL [Suspect]
     Active Substance: CLOZAPINE
     Dosage: UNK, DAILY
     Route: 048
     Dates: start: 20191120, end: 20191202
  7. QUETIAPINE. [Concomitant]
     Active Substance: QUETIAPINE
     Dosage: 20 MILLIMOLE, PM
     Route: 065
  8. LI LIQUID [Concomitant]
     Dosage: 1 DF, QD (PM)
     Route: 005
  9. LITHIUM CITRATE. [Concomitant]
     Active Substance: LITHIUM CITRATE
     Dosage: 1 DOSAGE FORM, QD
     Route: 005
  10. CLONAZEPAM. [Concomitant]
     Active Substance: CLONAZEPAM
     Indication: PRODUCT USED FOR UNKNOWN INDICATION
     Dosage: 2.5 MILLILITER, QD
     Route: 048
  11. QUETIAPINE. [Concomitant]
     Active Substance: QUETIAPINE
     Dosage: 20 MILLILITER, QD
     Route: 065
  12. LITHIUM CITRATE. [Concomitant]
     Active Substance: LITHIUM CITRATE
     Dosage: 15ML (600 MG) NOCTE, QD15 MILLILITER, QD
     Route: 005
  13. OLANZAPINE. [Suspect]
     Active Substance: OLANZAPINE
     Indication: PRODUCT USED FOR UNKNOWN INDICATION
     Dosage: UNK
     Route: 065
  14. CLOZARIL [Suspect]
     Active Substance: CLOZAPINE
     Dosage: UNK, DAILY
     Route: 048
     Dates: start: 20181212, end: 20181231
  15. OLANZAPINE. [Suspect]
     Active Substance: OLANZAPINE
     Dosage: UNK
     Route: 065
  16. SODIUM VALPROATE [Concomitant]
     Active Substance: VALPROATE SODIUM
     Indication: PRODUCT USED FOR UNKNOWN INDICATION
     Dosage: 18.75 MILLIMOLE, AM
     Route: 065
  17. LI LIQUID [Concomitant]
     Indication: PRODUCT USED FOR UNKNOWN INDICATION
     Dosage: UNK, PM
     Route: 005
  18. SODIUM VALPROATE [Concomitant]
     Active Substance: VALPROATE SODIUM
     Dosage: 25 MILLIMOLE, PM
     Route: 065
  19. SODIUM VALPROATE [Concomitant]
     Active Substance: VALPROATE SODIUM
     Dosage: 18.75 MILLILITER, QD
     Route: 065
  20. CLOZARIL [Suspect]
     Active Substance: CLOZAPINE
     Indication: SCHIZOPHRENIA
     Dosage: UNK
     Route: 048
     Dates: start: 20181115

REACTIONS (9)
  - White blood cell count increased [Recovered/Resolved]
  - Malaise [Unknown]
  - Abnormal behaviour [Unknown]
  - Aggression [Unknown]
  - Drug ineffective [Unknown]
  - Neutropenia [Recovered/Resolved]
  - White blood cell count decreased [Recovered/Resolved]
  - Neutrophil count increased [Recovered/Resolved]
  - Eosinophilia [Recovered/Resolved]

NARRATIVE: CASE EVENT DATE: 201811
